FAERS Safety Report 22349147 (Version 1)
Quarter: 2023Q2

REPORT INFORMATION
  Report Type: Spontaneous
  Country: NL (occurrence: NL)
  Receive Date: 20230522
  Receipt Date: 20230522
  Transmission Date: 20230722
  Serious: Yes (Life-Threatening)
  Sender: FDA-Public Use
  Company Number: None

PATIENT
  Sex: Male
  Weight: 30 kg

DRUGS (1)
  1. ALBUTEROL [Suspect]
     Active Substance: ALBUTEROL
     Indication: Asthma
     Dosage: 400 UG, Q3H (ELKE 3 UUR 4 PUFS)/( AEROSOL 100 UG/DO / SALBUTAMOL SDZ AER CFKVR 100MCG/DO SPBS 200DO
     Route: 065
     Dates: start: 20230505, end: 20230505

REACTIONS (3)
  - Dyspnoea [Recovered/Resolved]
  - Allergic reaction to excipient [Unknown]
  - Product substitution issue [Unknown]
